APPROVED DRUG PRODUCT: PROQUIN XR
Active Ingredient: CIPROFLOXACIN HYDROCHLORIDE
Strength: EQ 500MG BASE
Dosage Form/Route: TABLET, EXTENDED RELEASE;ORAL
Application: N021744 | Product #001
Applicant: DEPOMED INC
Approved: May 19, 2005 | RLD: No | RS: No | Type: DISCN